FAERS Safety Report 8201258-3 (Version None)
Quarter: 2012Q1

REPORT INFORMATION
  Report Type: 
  Country: None (occurrence: None)
  Receive Date: 20120312
  Receipt Date: 20120303
  Transmission Date: 20120608
  Serious: Yes (Other)
  Sender: FDA-Public Use
  Company Number: PHHY2012FR018784

PATIENT

DRUGS (1)
  1. IMATINIB MESYLATE [Suspect]
     Indication: GIANT CELL TUMOUR OF TENDON SHEATH
     Dosage: 400 MG, DAILY

REACTIONS (2)
  - NEOPLASM PROGRESSION [None]
  - NEOPLASM MALIGNANT [None]
